FAERS Safety Report 16357653 (Version 3)
Quarter: 2019Q2

REPORT INFORMATION
  Report Type: Spontaneous
  Country: JP (occurrence: JP)
  Receive Date: 20190527
  Receipt Date: 20190618
  Transmission Date: 20190711
  Serious: Yes (Hospitalization, Other)
  Sender: FDA-Public Use
  Company Number: JP-ASTELLAS-2019JP009621

PATIENT
  Age: 4 Decade
  Sex: Male

DRUGS (1)
  1. XOSPATA [Suspect]
     Active Substance: GILTERITINIB
     Indication: ACUTE MYELOID LEUKAEMIA
     Route: 048

REACTIONS (4)
  - Gastrointestinal perforation [Recovering/Resolving]
  - Platelet count decreased [Unknown]
  - Gastrointestinal haemorrhage [Recovering/Resolving]
  - Bone marrow failure [Unknown]
